FAERS Safety Report 14889482 (Version 1)
Quarter: 2018Q2

REPORT INFORMATION
  Report Type: Spontaneous
  Country: FR (occurrence: FR)
  Receive Date: 20180514
  Receipt Date: 20180514
  Transmission Date: 20180711
  Serious: Yes (Other)
  Sender: FDA-Public Use
  Company Number: FR-MERCK KGAA-2047676

PATIENT
  Age: 45 Year
  Sex: Female

DRUGS (1)
  1. NOVOTHYROX [Suspect]
     Active Substance: LEVOTHYROXINE SODIUM
     Indication: AUTOIMMUNE THYROIDITIS

REACTIONS (23)
  - Headache [Recovering/Resolving]
  - Asthenia [Not Recovered/Not Resolved]
  - Pain [None]
  - Depression [Recovering/Resolving]
  - Anger [None]
  - Alopecia [Recovering/Resolving]
  - Pain in extremity [None]
  - Mental impairment [Recovering/Resolving]
  - Myalgia [Recovering/Resolving]
  - Amnesia [Recovering/Resolving]
  - Disturbance in attention [None]
  - Visual impairment [Recovering/Resolving]
  - Decreased interest [None]
  - Monoplegia [None]
  - Fatigue [None]
  - Arthralgia [Recovering/Resolving]
  - Depressed mood [None]
  - Decreased appetite [None]
  - Back pain [Recovering/Resolving]
  - Loss of personal independence in daily activities [None]
  - Paraesthesia [Recovering/Resolving]
  - Family stress [None]
  - Mood altered [None]

NARRATIVE: CASE EVENT DATE: 201706
